FAERS Safety Report 22372785 (Version 1)
Quarter: 2023Q2

REPORT INFORMATION
  Report Type: Spontaneous
  Country: CN (occurrence: CN)
  Receive Date: 20230526
  Receipt Date: 20230526
  Transmission Date: 20230721
  Serious: Yes (Hospitalization, Other)
  Sender: FDA-Public Use
  Company Number: CN-PFIZER INC-202300197713

PATIENT
  Age: 44 Year
  Sex: Female

DRUGS (1)
  1. LORBRENA [Suspect]
     Active Substance: LORLATINIB
     Indication: Lung neoplasm malignant
     Dosage: 1 DF, 1X/DAY
     Route: 048

REACTIONS (6)
  - Fluid retention [Unknown]
  - Oliguria [Unknown]
  - Cardiac failure [Unknown]
  - Pneumonia [Unknown]
  - Neoplasm progression [Unknown]
  - Therapeutic response unexpected [Unknown]
